FAERS Safety Report 16424815 (Version 1)
Quarter: 2019Q2

REPORT INFORMATION
  Report Type: Spontaneous
  Country: US (occurrence: US)
  Receive Date: 20190506
  Receipt Date: 20190506
  Transmission Date: 20190711
  Serious: No
  Sender: FDA-Public Use
  Company Number: None

PATIENT
  Age: 46 Year
  Sex: Female
  Weight: 62.6 kg

DRUGS (2)
  1. METHOTREXATE 50MG/2ML MDV, [Suspect]
     Active Substance: METHOTREXATE
     Indication: FIBROMYALGIA
     Dosage: INJECT 20MG (0.8ML) SUBCUTANEOUSLY  EVERY SEVEN DAYS  ON THE SAME DAY EACH WEEK  AS DIRECTED
     Route: 058
     Dates: start: 201812
  2. METHOTREXATE 50MG/2ML MDV, [Suspect]
     Active Substance: METHOTREXATE
     Indication: RHEUMATOID ARTHRITIS
     Dosage: INJECT 20MG (0.8ML) SUBCUTANEOUSLY  EVERY SEVEN DAYS  ON THE SAME DAY EACH WEEK  AS DIRECTED
     Route: 058
     Dates: start: 201812

REACTIONS (1)
  - Foot operation [None]
